FAERS Safety Report 6667321-3 (Version None)
Quarter: 2010Q1

REPORT INFORMATION
  Report Type: 
  Country: None (occurrence: None)
  Receive Date: 20100325
  Receipt Date: 20100315
  Transmission Date: 20100710
  Serious: Yes (Hospitalization, Other)
  Sender: FDA-Public Use
  Company Number: AEUSA201000028

PATIENT
  Age: 51 Year
  Sex: Male
  Weight: 99.7913 kg

DRUGS (16)
  1. PROLASTIN [Suspect]
     Indication: ALPHA-1 ANTI-TRYPSIN DEFICIENCY
     Dosage: 60 MG/KG; QW; IV, 60 MG/KG; QW; IV, 60 MG/KG; QW; IV, 60 MG/KG; QW/ PO
     Route: 048
     Dates: start: 20050920, end: 20091201
  2. PROLASTIN [Suspect]
     Indication: ALPHA-1 ANTI-TRYPSIN DEFICIENCY
     Dosage: 60 MG/KG; QW; IV, 60 MG/KG; QW; IV, 60 MG/KG; QW; IV, 60 MG/KG; QW/ PO
     Route: 048
     Dates: start: 20100105
  3. PROLASTIN [Suspect]
     Indication: ALPHA-1 ANTI-TRYPSIN DEFICIENCY
     Dosage: 60 MG/KG; QW; IV, 60 MG/KG; QW; IV, 60 MG/KG; QW; IV, 60 MG/KG; QW/ PO
     Route: 048
     Dates: start: 20100114
  4. PROLASTIN [Suspect]
     Indication: ALPHA-1 ANTI-TRYPSIN DEFICIENCY
     Dosage: 60 MG/KG; QW; IV, 60 MG/KG; QW; IV, 60 MG/KG; QW; IV, 60 MG/KG; QW/ PO
     Route: 048
     Dates: start: 20100120
  5. PROLASTIN [Suspect]
  6. SEREVENT [Concomitant]
  7. AEROBID [Concomitant]
  8. CALCIUM WITH VITAMIN D [Concomitant]
  9. VITAMIN C [Concomitant]
  10. OMEPRAZOLE [Concomitant]
  11. ATROVENT [Concomitant]
  12. LACTULOSE [Concomitant]
  13. M.V.I. [Concomitant]
  14. POTASSIUM [Concomitant]
  15. LASIX [Concomitant]
  16. SPIRONOLACTONE [Concomitant]

REACTIONS (8)
  - DEHYDRATION [None]
  - HEPATIC ENCEPHALOPATHY [None]
  - HEPATIC FAILURE [None]
  - HYPOTENSION [None]
  - NOSOCOMIAL INFECTION [None]
  - PNEUMONIA [None]
  - RENAL FAILURE [None]
  - WEIGHT INCREASED [None]
